FAERS Safety Report 17255446 (Version 1)
Quarter: 2020Q1

REPORT INFORMATION
  Report Type: Spontaneous
  Country: US (occurrence: US)
  Receive Date: 20200110
  Receipt Date: 20200110
  Transmission Date: 20200409
  Serious: No
  Sender: FDA-Public Use
  Company Number: US-IPSEN BIOPHARMACEUTICALS, INC.-2009-0980

PATIENT
  Age: 12 Year
  Sex: Female
  Weight: 46.7 kg

DRUGS (5)
  1. INCRELEX [Suspect]
     Active Substance: MECASERMIN
     Indication: GROWTH DISORDER
     Route: 058
     Dates: start: 20080417, end: 20080419
  2. LUPRON [Concomitant]
     Active Substance: LEUPROLIDE ACETATE
  3. HUMAN GROWTH HORMONE, RECOMBINANT [Concomitant]
     Active Substance: SOMATROPIN
  4. INCRELEX [Suspect]
     Active Substance: MECASERMIN
     Indication: PRECOCIOUS PUBERTY
     Route: 058
     Dates: start: 20080228, end: 20080416
  5. INCRELEX [Suspect]
     Active Substance: MECASERMIN
     Indication: OFF LABEL USE

REACTIONS (7)
  - Lip swelling [Recovered/Resolved]
  - Agitation [Recovered/Resolved]
  - Irritability [Recovered/Resolved]
  - Melanocytic naevus [Recovering/Resolving]
  - Peripheral swelling [Recovered/Resolved]
  - Off label use [Unknown]
  - Hot flush [Recovered/Resolved]

NARRATIVE: CASE EVENT DATE: 20080228
